FAERS Safety Report 6704979-4 (Version None)
Quarter: 2010Q2

REPORT INFORMATION
  Report Type: 
  Country: None (occurrence: None)
  Receive Date: 20100430
  Receipt Date: 20100423
  Transmission Date: 20101027
  Serious: Yes (Disabling, Other)
  Sender: FDA-Public Use
  Company Number: A0845198A

PATIENT
  Age: 62 Year
  Sex: Female

DRUGS (9)
  1. ARIXTRA [Suspect]
     Indication: DRUG USE FOR UNKNOWN INDICATION
     Dosage: 10MG IN THE MORNING
     Route: 058
     Dates: start: 20100113
  2. VITAMIN D [Concomitant]
  3. VOLTAREN [Concomitant]
  4. LISINOPRIL [Concomitant]
  5. GLIMEPIRIDE [Concomitant]
  6. OMEPRAZOLE [Concomitant]
  7. PLAVIX [Concomitant]
  8. LASIX [Concomitant]
  9. COUMADIN [Concomitant]

REACTIONS (3)
  - ABDOMINAL PAIN [None]
  - ACTIVITIES OF DAILY LIVING IMPAIRED [None]
  - MUSCLE SPASMS [None]
